FAERS Safety Report 6836026-8 (Version None)
Quarter: 2010Q3

REPORT INFORMATION
  Report Type: 
  Country: None (occurrence: None)
  Receive Date: 20100713
  Receipt Date: 20100707
  Transmission Date: 20110219
  Serious: Yes (Death, Hospitalization)
  Sender: FDA-Public Use
  Company Number: B0584376B

PATIENT
  Sex: Male
  Weight: 68.7 kg

DRUGS (8)
  1. TOPOTECAN [Suspect]
     Dosage: 1.25MGM2 CYCLIC
     Dates: start: 20090615
  2. AVANDAMET [Concomitant]
     Dosage: 4000MG PER DAY
     Route: 048
  3. DIAMICRON [Concomitant]
     Dosage: 80MG PER DAY
     Route: 048
  4. TIOTROPIUM BROMIDE [Concomitant]
     Indication: CHRONIC OBSTRUCTIVE PULMONARY DISEASE
     Route: 055
  5. ANASMA [Concomitant]
     Indication: CHRONIC OBSTRUCTIVE PULMONARY DISEASE
     Route: 055
  6. BISOPROLOL [Concomitant]
     Dosage: 2.5MG PER DAY
     Route: 048
  7. OMEPRAZOLE [Concomitant]
     Indication: PROPHYLAXIS
     Dosage: 20MG PER DAY
     Route: 048
  8. TORSEMIDE [Concomitant]
     Dosage: 5MG PER DAY
     Route: 048

REACTIONS (3)
  - ANAEMIA [None]
  - GENERAL PHYSICAL HEALTH DETERIORATION [None]
  - THROMBOCYTOPENIA [None]
